FAERS Safety Report 16818128 (Version 1)
Quarter: 2019Q3

REPORT INFORMATION
  Report Type: Spontaneous
  Country: FR (occurrence: FR)
  Receive Date: 20190917
  Receipt Date: 20190917
  Transmission Date: 20191005
  Serious: Yes (Hospitalization, Other)
  Sender: FDA-Public Use
  Company Number: FR-PFIZER INC-2019397094

PATIENT
  Age: 79 Year
  Sex: Male
  Weight: 85 kg

DRUGS (6)
  1. RAMIPRIL. [Concomitant]
     Active Substance: RAMIPRIL
     Indication: INFARCTION
     Dosage: 1.25 MG, 1X/DAY
     Route: 048
     Dates: start: 20190719, end: 20190728
  2. KARDEGIC [Concomitant]
     Active Substance: ASPIRIN DL-LYSINE
     Indication: MYOCARDIAL ISCHAEMIA
     Dosage: 75 MG, 1X/DAY
     Route: 048
  3. LANSOPRAZOLE. [Concomitant]
     Active Substance: LANSOPRAZOLE
     Indication: INFARCTION
     Dosage: 15 MG, 1X/DAY
     Route: 048
     Dates: start: 20190719
  4. BRILIQUE [Concomitant]
     Active Substance: TICAGRELOR
     Indication: INFARCTION
     Dosage: 180 MG, 1X/DAY
     Route: 048
     Dates: start: 20190719
  5. BISOPROLOL [Suspect]
     Active Substance: BISOPROLOL
     Indication: INFARCTION
     Dosage: 1.25 MG, 1X/DAY
     Route: 048
     Dates: start: 20190719, end: 20190727
  6. ATORVASTATIN CALCIUM. [Suspect]
     Active Substance: ATORVASTATIN CALCIUM
     Indication: INFARCTION
     Dosage: 80 MG, 1X/DAY
     Route: 048
     Dates: start: 20190719, end: 20190727

REACTIONS (1)
  - Organising pneumonia [Recovering/Resolving]

NARRATIVE: CASE EVENT DATE: 20190724
